FAERS Safety Report 8769508 (Version 3)
Quarter: 2012Q4

REPORT INFORMATION
  Report Type: 
  Country: NO (occurrence: NO)
  Receive Date: 20120904
  Receipt Date: 20120926
  Transmission Date: 20130627
  Serious: Yes (Hospitalization, Other)
  Sender: FDA-Public Use
  Company Number: NO-ROCHE-1109676

PATIENT
  Sex: Male

DRUGS (5)
  1. RITUXIMAB [Suspect]
     Indication: WEGENER^S GRANULOMATOSIS
     Route: 065
     Dates: start: 20070620
  2. RITUXIMAB [Suspect]
     Dosage: mono therapy
     Route: 065
     Dates: start: 201004
  3. CYCLOPHOSPHAMIDE [Suspect]
     Indication: WEGENER^S GRANULOMATOSIS
     Route: 065
  4. PREDNISOLONE [Suspect]
     Indication: WEGENER^S GRANULOMATOSIS
     Route: 065
     Dates: start: 20100420
  5. AZATHIOPRINE [Concomitant]
     Route: 065
     Dates: start: 200706

REACTIONS (2)
  - Hypogammaglobulinaemia [Recovering/Resolving]
  - Infection [Unknown]
